FAERS Safety Report 6746960-5 (Version None)
Quarter: 2010Q2

REPORT INFORMATION
  Report Type: 
  Country: None (occurrence: None)
  Receive Date: 20100528
  Receipt Date: 20091105
  Transmission Date: 20101027
  Serious: No
  Sender: FDA-Public Use
  Company Number: US-ASTRAZENECA-2009SE32005

PATIENT
  Sex: Female

DRUGS (5)
  1. PRILOSEC OTC [Suspect]
     Dosage: 1 TABLET, 1 /DAY
     Route: 048
     Dates: start: 20091018
  2. THYROID THERAPY [Concomitant]
     Dosage: UNKNOWN
  3. VESICARE [Concomitant]
     Dosage: UNKNOWN
  4. VITAMINS                           /90003601/ [Concomitant]
     Dosage: UNKNOWN
  5. ANTIBIOTICS [Concomitant]

REACTIONS (3)
  - DIZZINESS [None]
  - HEADACHE [None]
  - INCORRECT DRUG ADMINISTRATION DURATION [None]
